FAERS Safety Report 16959160 (Version 3)
Quarter: 2019Q4

REPORT INFORMATION
  Report Type: Spontaneous
  Country: ES (occurrence: ES)
  Receive Date: 20191024
  Receipt Date: 20191206
  Transmission Date: 20200122
  Serious: Yes (Other)
  Sender: FDA-Public Use
  Company Number: ES-BIOGEN-2019BI00798192

PATIENT
  Age: 51 Year
  Sex: Female
  Weight: 104 kg

DRUGS (1)
  1. TYSABRI [Suspect]
     Active Substance: NATALIZUMAB
     Indication: MULTIPLE SCLEROSIS
     Route: 065
     Dates: start: 20190715

REACTIONS (9)
  - Abdominal pain upper [Unknown]
  - Peripheral coldness [Unknown]
  - Oedema peripheral [Recovered/Resolved]
  - Cough [Unknown]
  - Fatigue [Unknown]
  - Cyanosis [Unknown]
  - Dyspnoea [Recovered/Resolved]
  - Sodium retention [Not Recovered/Not Resolved]
  - Infusion related reaction [Recovered/Resolved]

NARRATIVE: CASE EVENT DATE: 201908
